FAERS Safety Report 17929709 (Version 7)
Quarter: 2022Q4

REPORT INFORMATION
  Report Type: Spontaneous
  Country: US (occurrence: US)
  Receive Date: 20200623
  Receipt Date: 20221219
  Transmission Date: 20230113
  Serious: Yes (Other)
  Sender: FDA-Public Use
  Company Number: US-PFIZER INC-2019251716

PATIENT
  Age: 78 Year
  Sex: Female
  Weight: 104.33 kg

DRUGS (3)
  1. TOVIAZ [Suspect]
     Active Substance: FESOTERODINE FUMARATE
     Indication: Hypertonic bladder
     Dosage: 4 MG, ALTERNATE DAY(TAKE ONE TABLET EVERY OTHER DAY)
  2. TOVIAZ [Suspect]
     Active Substance: FESOTERODINE FUMARATE
     Dosage: 8 MG, ALTERNATE DAY (TAKE ONE TABLET OPPOSITE DAYS OF THE 4 MG TABLET)
  3. TOVIAZ [Suspect]
     Active Substance: FESOTERODINE FUMARATE
     Dosage: 8 MG, 1X/DAY

REACTIONS (3)
  - Pneumonia [Unknown]
  - Dry eye [Unknown]
  - Off label use [Unknown]
